FAERS Safety Report 20339871 (Version 2)
Quarter: 2022Q1

REPORT INFORMATION
  Report Type: Spontaneous
  Country: FR (occurrence: FR)
  Receive Date: 20220117
  Receipt Date: 20220224
  Transmission Date: 20220423
  Serious: Yes (Other)
  Sender: FDA-Public Use
  Company Number: FR-SA-2019SA129435

PATIENT
  Age: 35 Year
  Sex: Female
  Weight: 55 kg

DRUGS (1)
  1. LOVENOX [Suspect]
     Active Substance: ENOXAPARIN SODIUM
     Indication: Foot deformity
     Dosage: UNK UNK, Q12H
     Route: 058
     Dates: start: 20190319, end: 20190322

REACTIONS (13)
  - Erythema multiforme [Unknown]
  - Pruritus [Unknown]
  - Urticaria [Unknown]
  - Skin weeping [Unknown]
  - Angioedema [Unknown]
  - Burning sensation [Recovered/Resolved]
  - Blister [Unknown]
  - Swelling [Unknown]
  - Skin reaction [Unknown]
  - Injection site rash [Recovered/Resolved]
  - Skin oedema [Recovered/Resolved]
  - Erythema [Unknown]
  - Condition aggravated [Unknown]

NARRATIVE: CASE EVENT DATE: 20190319
